FAERS Safety Report 9653328 (Version 8)
Quarter: 2014Q2

REPORT INFORMATION
  Report Type: Report from Study
  Country: CA (occurrence: CA)
  Receive Date: 20131029
  Receipt Date: 20140618
  Transmission Date: 20141212
  Serious: Yes (Hospitalization, Other)
  Sender: FDA-Public Use
  Company Number: CA-ROCHE-1138009

PATIENT
  Age: 67 Year
  Sex: Female
  Weight: 69.4 kg

DRUGS (17)
  1. RITUXAN [Suspect]
     Indication: RHEUMATOID ARTHRITIS
     Dosage: LAST DOSE: 10/JUN/2014
     Route: 042
     Dates: start: 20091208
  2. ACETAMINOPHEN [Concomitant]
     Route: 048
     Dates: start: 20120719, end: 20120719
  3. ACETAMINOPHEN [Concomitant]
     Route: 048
     Dates: start: 20091208
  4. PREDNISONE [Concomitant]
  5. APO-SERTRALINE [Concomitant]
  6. COUMADIN [Concomitant]
  7. DIGOXIN [Concomitant]
  8. FOSAMAX [Concomitant]
  9. METHOTREXATE [Concomitant]
  10. FUROSEMIDE [Concomitant]
  11. RANITIDINE [Concomitant]
     Route: 065
     Dates: end: 2013
  12. DIPHENHYDRAMINE HCL [Concomitant]
     Indication: PREMEDICATION
     Route: 048
     Dates: start: 20091208
  13. DIPHENHYDRAMINE HCL [Concomitant]
     Route: 048
     Dates: start: 20120719, end: 20120719
  14. METHYLPREDNISOLONE [Concomitant]
     Route: 042
     Dates: start: 20091208
  15. METHYLPREDNISOLONE [Concomitant]
     Route: 042
     Dates: start: 20120719, end: 20120719
  16. RABEPRAZOLE [Concomitant]
  17. LASIX [Concomitant]
     Route: 065
     Dates: start: 20131103

REACTIONS (10)
  - Pulmonary oedema [Unknown]
  - Pneumonia [Recovered/Resolved]
  - Chest discomfort [Recovering/Resolving]
  - Cardiac failure [Unknown]
  - Rash [Not Recovered/Not Resolved]
  - Throat irritation [Unknown]
  - Oral pruritus [Unknown]
  - Fatigue [Unknown]
  - Medication error [Unknown]
  - Infusion related reaction [Unknown]
